FAERS Safety Report 8181302-2 (Version None)
Quarter: 2012Q1

REPORT INFORMATION
  Report Type: 
  Country: None (occurrence: None)
  Receive Date: 20120302
  Receipt Date: 20120223
  Transmission Date: 20120608
  Serious: Yes (Hospitalization, Other)
  Sender: FDA-Public Use
  Company Number: US-BAYER-2011-077140

PATIENT
  Age: 31 Year
  Sex: Female
  Weight: 62.132 kg

DRUGS (9)
  1. YAZ [Suspect]
     Indication: PREMENSTRUAL SYNDROME
     Dosage: UNK
     Route: 048
     Dates: start: 20070901, end: 20100616
  2. KLONOPIN [Concomitant]
     Dosage: 1 MG, QD
  3. YAZ [Suspect]
  4. FAMOTIDINE [Concomitant]
     Indication: GASTROOESOPHAGEAL REFLUX DISEASE
     Dosage: UNK
     Dates: start: 20100101, end: 20100901
  5. YAZ [Suspect]
  6. GANIRELIX ACETATE INJECTION [Concomitant]
     Dosage: 30 MG, UNK
  7. FLUORETTEN [Concomitant]
  8. SPIRONOLACTONE [Concomitant]
     Indication: POLYCYSTIC OVARIES
     Dosage: UNK
     Dates: start: 20070101
  9. VICODIN [Concomitant]

REACTIONS (5)
  - CHOLECYSTITIS [None]
  - PAIN [None]
  - CHOLELITHIASIS [None]
  - INJURY [None]
  - MENTAL DISORDER [None]
